FAERS Safety Report 4442164-X (Version None)
Quarter: 2004Q3

REPORT INFORMATION
  Report Type: 
  Country: None (occurrence: None)
  Receive Date: 20040901
  Receipt Date: 20040818
  Transmission Date: 20050211
  Serious: Yes (Hospitalization)
  Sender: FDA-Public Use
  Company Number: 200410396BYL

PATIENT
  Age: 36 Year
  Sex: Male

DRUGS (6)
  1. ASPIRIN [Suspect]
     Indication: CEREBRAL INFARCTION
     Dosage: 100 MG, QD, ORAL
     Route: 048
     Dates: start: 20040603, end: 20040714
  2. PANADINE (TICLOPIDINE HYDROCHLORIDE) [Suspect]
     Indication: CEREBRAL INFARCTION
     Dosage: 100 MG , BID, ORAL
     Route: 048
     Dates: start: 20040702, end: 20040714
  3. PLETAL [Suspect]
     Indication: CEREBRAL INFARCTION
     Dosage: BID, ORAL
     Route: 048
     Dates: start: 20040603, end: 20040701
  4. SERENAL [Concomitant]
  5. SERENE [Concomitant]
  6. DIAZEPAM [Concomitant]

REACTIONS (2)
  - PYREXIA [None]
  - TOXIC SKIN ERUPTION [None]
